FAERS Safety Report 9272823 (Version 1)
Quarter: 2013Q2

REPORT INFORMATION
  Report Type: Report from Study
  Country: BE (occurrence: BE)
  Receive Date: 20130506
  Receipt Date: 20130506
  Transmission Date: 20140414
  Serious: Yes (Other)
  Sender: FDA-Public Use
  Company Number: BE-VERTEX PHARMACEUTICALS INC-2013-004398

PATIENT
  Age: 43 Year
  Sex: Male

DRUGS (6)
  1. TELAPREVIR [Suspect]
     Indication: HEPATITIS C
     Dosage: 375 MG, UNK
     Route: 048
  2. TELAPREVIR [Suspect]
     Dosage: 2250 MG, QD
  3. PEGASYS [Concomitant]
     Indication: HEPATITIS C
     Dosage: 0.5 ML, QW
  4. COPEGUS [Concomitant]
     Indication: HEPATITIS C
     Dosage: 1200 MG, QD
  5. PARACETAMOL [Concomitant]
     Indication: PRODUCT USED FOR UNKNOWN INDICATION
     Route: 065
  6. IBUPROFEN [Concomitant]
     Indication: PRODUCT USED FOR UNKNOWN INDICATION
     Route: 065

REACTIONS (6)
  - Depression [Not Recovered/Not Resolved]
  - Insomnia [Not Recovered/Not Resolved]
  - Influenza like illness [Not Recovered/Not Resolved]
  - Injection site swelling [Recovered/Resolved]
  - Fatigue [Not Recovered/Not Resolved]
  - Erythema [Recovered/Resolved]
